FAERS Safety Report 9069991 (Version 1)
Quarter: 2013Q1

REPORT INFORMATION
  Report Type: Spontaneous
  Country: US (occurrence: US)
  Receive Date: 20130131
  Receipt Date: 20130131
  Transmission Date: 20140127
  Serious: No
  Sender: FDA-Public Use
  Company Number: US-ABBOTT-12P-163-1005342-00

PATIENT
  Age: 62 Year
  Sex: Male
  Weight: 86.26 kg

DRUGS (3)
  1. HUMIRA [Suspect]
     Indication: HIDRADENITIS
     Dates: start: 20121027
  2. HUMIRA [Suspect]
     Dates: start: 20121104
  3. OXYCONTIN [Concomitant]
     Indication: PAIN

REACTIONS (1)
  - Off label use [Not Recovered/Not Resolved]
